FAERS Safety Report 9606006 (Version 2)
Quarter: 2014Q1

REPORT INFORMATION
  Report Type: Spontaneous
  Country: GB (occurrence: GB)
  Receive Date: 20131008
  Receipt Date: 20140127
  Transmission Date: 20141002
  Serious: Yes (Other)
  Sender: FDA-Public Use
  Company Number: PHHY2013GB108874

PATIENT
  Age: 74 Year
  Sex: Male

DRUGS (11)
  1. AMIODARONE [Suspect]
     Indication: ATRIAL FLUTTER
     Dosage: 200 MG, QD
     Route: 048
     Dates: start: 20130831, end: 20130919
  2. LACTULOSE [Concomitant]
     Dosage: 3.1-3.7G/5ML. 5-15ML ONCE OR TWICE DAILY WHEN NEEDED.
     Route: 048
  3. ASPIRIN [Concomitant]
     Dosage: 75 MG, QD; 84 TABLETS
  4. ATORVASTATIN [Concomitant]
     Dosage: 40 MG, QD
  5. BISOPROLOL [Concomitant]
     Dosage: 3.75 MG, 2 IN THE MORNING, ONE AT NIGHT
  6. BISOPROLOL [Concomitant]
     Dosage: 2.5 MG, 1.2 IN THE MORNING
  7. EPLERENONE [Concomitant]
     Dosage: 25 MG, QD
  8. FUROSEMIDE [Concomitant]
     Dosage: 40 MG, QD; EACH MORNING
  9. RAMIPRIL [Concomitant]
     Dosage: 2.5 MG, QD
  10. TICAGRELOR [Concomitant]
     Dosage: 90 MG, QD;EACH MORNING
  11. WARFARIN [Concomitant]
     Dosage: 3 MG, QD

REACTIONS (2)
  - Orthopnoea [Unknown]
  - Hypothyroidism [Recovering/Resolving]
